FAERS Safety Report 15126116 (Version 2)
Quarter: 2018Q3

REPORT INFORMATION
  Report Type: Spontaneous
  Country: IT (occurrence: IT)
  Receive Date: 20180710
  Receipt Date: 20180808
  Transmission Date: 20181010
  Serious: Yes (Other)
  Sender: FDA-Public Use
  Company Number: IT-OTSUKA-2018_018285

PATIENT
  Age: 34 Year
  Sex: Male

DRUGS (6)
  1. DEPAKIN [Suspect]
     Active Substance: VALPROATE SODIUM
     Indication: SUBSTANCE DEPENDENCE
     Dosage: 1000 MG, UNK
     Route: 048
  2. ZOLOFT [Suspect]
     Active Substance: SERTRALINE HYDROCHLORIDE
     Indication: SUBSTANCE DEPENDENCE
     Dosage: 200 MG, UNK
     Route: 048
  3. HALCION [Suspect]
     Active Substance: TRIAZOLAM
     Indication: SUBSTANCE DEPENDENCE
     Dosage: 250 ?G, UNK
     Route: 048
  4. TRITTICO [Suspect]
     Active Substance: TRAZODONE HYDROCHLORIDE
     Indication: SUBSTANCE DEPENDENCE
     Dosage: 75 MG, UNK
     Route: 048
  5. DIAZEPAM. [Suspect]
     Active Substance: DIAZEPAM
     Indication: SUBSTANCE DEPENDENCE
     Dosage: 35 GTT, UNK
     Route: 048
  6. ABILIFY [Suspect]
     Active Substance: ARIPIPRAZOLE
     Indication: SUBSTANCE DEPENDENCE
     Dosage: 10 MG, UNK
     Route: 048

REACTIONS (4)
  - Nervousness [Recovering/Resolving]
  - Tachycardia [Recovering/Resolving]
  - Restlessness [Recovering/Resolving]
  - Self-injurious ideation [Recovering/Resolving]

NARRATIVE: CASE EVENT DATE: 20180329
